FAERS Safety Report 17254524 (Version 1)
Quarter: 2020Q1

REPORT INFORMATION
  Report Type: Spontaneous
  Country: US (occurrence: US)
  Receive Date: 20200109
  Receipt Date: 20200109
  Transmission Date: 20200409
  Serious: Yes (Hospitalization)
  Sender: FDA-Public Use
  Company Number: US-ELI_LILLY_AND_COMPANY-US201912014161

PATIENT
  Age: 67 Year
  Sex: Male

DRUGS (1)
  1. EMGALITY [Suspect]
     Active Substance: GALCANEZUMAB-GNLM
     Indication: MIGRAINE
     Dosage: 1 DOSAGE FORM, SINGLE
     Route: 058

REACTIONS (8)
  - Fall [Recovering/Resolving]
  - Dyspnoea [Not Recovered/Not Resolved]
  - Dyspepsia [Recovering/Resolving]
  - Contusion [Recovering/Resolving]
  - Delusional disorder, unspecified type [Recovering/Resolving]
  - Faeces discoloured [Recovering/Resolving]
  - Palpitations [Not Recovered/Not Resolved]
  - White blood cell count decreased [Unknown]
